FAERS Safety Report 19488218 (Version 1)
Quarter: 2021Q3

REPORT INFORMATION
  Report Type: Spontaneous
  Country: US (occurrence: US)
  Receive Date: 20210702
  Receipt Date: 20210702
  Transmission Date: 20211014
  Serious: No
  Sender: FDA-Public Use
  Company Number: US-BIOCRYST-2021BCR00172

PATIENT
  Sex: Female

DRUGS (3)
  1. TAKHZYRO [Concomitant]
     Active Substance: LANADELUMAB-FLYO
  2. ORLADEYO [Suspect]
     Active Substance: BEROTRALSTAT HYDROCHLORIDE
     Indication: HEREDITARY ANGIOEDEMA
     Dosage: UNK
     Route: 048
  3. DANAZOL. [Concomitant]
     Active Substance: DANAZOL

REACTIONS (2)
  - Condition aggravated [Unknown]
  - Hereditary angioedema [Unknown]
